FAERS Safety Report 9741244 (Version 1)
Quarter: 2013Q4

REPORT INFORMATION
  Report Type: Spontaneous
  Country: US (occurrence: US)
  Receive Date: 20131209
  Receipt Date: 20131209
  Transmission Date: 20140711
  Serious: No
  Sender: FDA-Public Use
  Company Number: US-BIOGENIDEC-2013BI099718

PATIENT
  Age: 56 Year
  Sex: Female

DRUGS (8)
  1. TECFIDERA [Suspect]
     Indication: MULTIPLE SCLEROSIS
     Route: 048
     Dates: start: 201308
  2. CENTRUM SILVER [Concomitant]
  3. DIFLUNISAL [Concomitant]
  4. FERROUS FUMARATE 324 [Concomitant]
  5. LISINOPRIL [Concomitant]
  6. OXYBUTYNIN CHLORIDE [Concomitant]
  7. SANCTURA XR [Concomitant]
  8. VITAMIN B COMPLEX [Concomitant]

REACTIONS (2)
  - Urinary incontinence [Unknown]
  - Diarrhoea [Unknown]
